FAERS Safety Report 4576285-8 (Version None)
Quarter: 2005Q1

REPORT INFORMATION
  Report Type: 
  Country: None (occurrence: None)
  Receive Date: 20050207
  Receipt Date: 20050124
  Transmission Date: 20050727
  Serious: Yes (Hospitalization)
  Sender: FDA-Public Use
  Company Number: 2005022161

PATIENT
  Age: 36 Year
  Sex: Male

DRUGS (9)
  1. DOXYCYCLINE [Suspect]
     Indication: LEPTOSPIROSIS
     Dosage: INTRAVENOUS
     Route: 042
     Dates: start: 20041203, end: 20041213
  2. CEFTRIAXONE [Suspect]
     Indication: PYREXIA
     Dosage: INTRAVENOUS
     Route: 042
     Dates: start: 20041202, end: 20041215
  3. CLARITHROMYCIN [Suspect]
     Indication: PYREXIA
     Dosage: INTRAVENOUS
     Route: 042
     Dates: start: 20041202, end: 20041206
  4. BACTRIM [Suspect]
     Indication: RHEUMATOID ARTHRITIS
     Dosage: INTRAVENOUS
     Route: 042
     Dates: start: 20041203
  5. OMEPRAZOLE SODIUM                 (OMEPRAZOLE SODIUM) [Suspect]
     Indication: ILL-DEFINED DISORDER
     Dosage: INTRAVENOUS
     Route: 042
     Dates: start: 20041130
  6. PHYTONADIONE [Concomitant]
  7. THIAMINE HYDROCHLORIDE               (THIAMINE HYDROCHLORIDE0 [Concomitant]
  8. BECOZYME [Concomitant]
  9. METOCLOPRAMIDE HYDROCHLORIDE [Concomitant]

REACTIONS (3)
  - LEPTOSPIROSIS [None]
  - PYREXIA [None]
  - TOXIC EPIDERMAL NECROLYSIS [None]
